FAERS Safety Report 25882468 (Version 1)
Quarter: 2025Q4

REPORT INFORMATION
  Report Type: Spontaneous
  Country: US (occurrence: US)
  Receive Date: 20251006
  Receipt Date: 20251006
  Transmission Date: 20260117
  Serious: Yes (Hospitalization, Other)
  Sender: SANOFI AVENTIS
  Company Number: US-DialogSolutions-SAAVPROD-PI826728-C1

PATIENT
  Age: 63 Year
  Sex: Female

DRUGS (11)
  1. PREDNISONE [Suspect]
     Active Substance: PREDNISONE
     Indication: Renal transplant
     Dosage: 5 MG, QD
  2. PREDNISONE [Suspect]
     Active Substance: PREDNISONE
     Dosage: 10 MG, QD MONOTHERAPY
  3. PREDNISONE [Suspect]
     Active Substance: PREDNISONE
     Dosage: 5 MG, QD TAPERED
  4. ANTI-THYMOCYTE GLOBULIN (RABBIT) NOS [Suspect]
     Active Substance: LAPINE T-LYMPHOCYTE IMMUNE GLOBULIN
     Indication: Renal transplant
     Dosage: 1.5 MG/KG, 4X
  5. TACROLIMUS [Suspect]
     Active Substance: TACROLIMUS
     Indication: Renal transplant
     Dosage: TARGET TROUGH 10-12 NG/ML FOR FIRST 3 MONTHS AFTER TRANSPLANT
  6. TACROLIMUS [Suspect]
     Active Substance: TACROLIMUS
     Dosage: RESTARTED TO MAINTAIN TARGET TROUGH OF 6-8 NG/ML
  7. MYCOPHENOLATE MOFETIL [Suspect]
     Active Substance: MYCOPHENOLATE MOFETIL
     Indication: Renal transplant
     Dosage: 1000 MG, BID
  8. MYCOPHENOLATE MOFETIL [Suspect]
     Active Substance: MYCOPHENOLATE MOFETIL
     Dosage: 250 MG, BID
  9. ACYCLOVIR [Concomitant]
     Active Substance: ACYCLOVIR
     Indication: Antiviral prophylaxis
     Dosage: UNK
  10. VALACYCLOVIR [Concomitant]
     Active Substance: VALACYCLOVIR HYDROCHLORIDE
     Indication: Antiviral prophylaxis
     Dosage: UNK
  11. LETERMOVIR [Concomitant]
     Active Substance: LETERMOVIR
     Indication: Antiviral prophylaxis

REACTIONS (13)
  - Post transplant lymphoproliferative disorder [Recovered/Resolved]
  - Diffuse large B-cell lymphoma [Recovered/Resolved]
  - Epstein-Barr viraemia [Recovered/Resolved]
  - Anuria [Recovered/Resolved]
  - Vomiting [Recovered/Resolved]
  - Graft complication [Recovered/Resolved]
  - Diarrhoea [Recovered/Resolved]
  - Acute kidney injury [Recovering/Resolving]
  - Urinary tract infection [Unknown]
  - Klebsiella infection [Unknown]
  - Klebsiella bacteraemia [Unknown]
  - Candida infection [Unknown]
  - Fungaemia [Unknown]
